FAERS Safety Report 10252804 (Version 1)
Quarter: 2014Q2

REPORT INFORMATION
  Report Type: Spontaneous
  Country: US (occurrence: US)
  Receive Date: 20140623
  Receipt Date: 20140623
  Transmission Date: 20141212
  Serious: No
  Sender: FDA-Public Use
  Company Number: US-PFIZER INC-2014167898

PATIENT
  Sex: Female

DRUGS (5)
  1. GABAPENTIN [Suspect]
     Indication: PAIN IN EXTREMITY
     Dosage: 400 MG, 3X/DAY
     Route: 048
  2. GABAPENTIN [Suspect]
     Indication: DYSSTASIA
  3. HYDROCODONE/ACETAMINOPHEN [Concomitant]
     Indication: BACK PAIN
     Dosage: 10/325 MG, UNK
  4. METOPROLOL [Concomitant]
     Indication: HYPERTENSION
     Dosage: 100 MG, 2X/DAY (TWO TABLETS OF 50MG IN MORNING AND TWO TABLETS OF 50MG AT NIGHT)
  5. VITAMIN D [Concomitant]
     Dosage: 2000 IU, DAILY

REACTIONS (1)
  - Drug ineffective [Unknown]
